FAERS Safety Report 8040454-5 (Version None)
Quarter: 2012Q1

REPORT INFORMATION
  Report Type: 
  Country: None (occurrence: None)
  Receive Date: 20120111
  Receipt Date: 20111229
  Transmission Date: 20120608
  Serious: No
  Sender: FDA-Public Use
  Company Number: US-AMGEN-USASP2011048027

PATIENT
  Sex: Female

DRUGS (18)
  1. VITAMIN D [Concomitant]
     Dosage: UNK
  2. METOPROLOL SUCCINATE [Concomitant]
     Dosage: UNK
  3. SYNTHROID [Concomitant]
  4. ENBREL [Suspect]
     Indication: RHEUMATOID ARTHRITIS
     Dosage: 50 MG, QWK
     Dates: start: 20070101
  5. ENBREL [Suspect]
     Indication: SPONDYLOARTHROPATHY
  6. COMBIVENT [Concomitant]
     Dosage: UNK
  7. MIRAPEX [Concomitant]
     Dosage: UNK
  8. OXYCODONE HCL [Concomitant]
  9. VALIUM [Concomitant]
  10. METHOTREXATE [Concomitant]
     Dosage: UNK
  11. CYMBALTA [Concomitant]
     Dosage: UNK
  12. SOMA [Concomitant]
     Dosage: UNK
  13. FOLIC ACID [Concomitant]
     Dosage: UNK
  14. DIAZIDE                            /00007602/ [Concomitant]
  15. ENBREL [Suspect]
     Indication: ANKYLOSING SPONDYLITIS
  16. CALCIUM [Concomitant]
     Dosage: UNK
  17. DIOVAN [Concomitant]
  18. ABILIFY [Concomitant]

REACTIONS (1)
  - RHEUMATOID ARTHRITIS [None]
